FAERS Safety Report 5392523-6 (Version None)
Quarter: 2007Q3

REPORT INFORMATION
  Report Type: 
  Country: None (occurrence: None)
  Receive Date: 20070720
  Receipt Date: 20070709
  Transmission Date: 20080115
  Serious: Yes (Other)
  Sender: FDA-Public Use
  Company Number: US-ELI_LILLY_AND_COMPANY-US200707002007

PATIENT
  Age: 77 Year
  Sex: Male

DRUGS (11)
  1. CYMBALTA [Suspect]
     Indication: DIABETIC NEUROPATHY
     Dosage: 60 MG, DAILY (1/D)
     Dates: start: 20070601
  2. FELODIPINE [Concomitant]
     Indication: BLOOD PRESSURE
     Dosage: 10 MG, UNK
  3. GLYBURIDE [Concomitant]
     Dosage: 2.5 MG, UNK
  4. OMEPRAZOLE [Concomitant]
     Dosage: 20 MG, 2/D
  5. CLONIDINE [Concomitant]
     Dosage: 0.2 MG, UNK
  6. TRAVOPROST [Concomitant]
     Dosage: 0.04 MG, UNK
  7. FLUNISOLIDE [Concomitant]
     Dosage: 25 MG, UNK
  8. LUNESTA [Concomitant]
     Indication: SLEEP DISORDER
  9. XOPENEX [Concomitant]
     Dosage: 59 UG, UNK
  10. COSOPT [Concomitant]
  11. NORTRIPTYLINE HCL [Concomitant]

REACTIONS (5)
  - FATIGUE [None]
  - HEADACHE [None]
  - HYPOTENSION [None]
  - INSOMNIA [None]
  - TINNITUS [None]
